FAERS Safety Report 4840625-2 (Version None)
Quarter: 2005Q4

REPORT INFORMATION
  Report Type: 
  Country: None (occurrence: None)
  Receive Date: 20051130
  Receipt Date: 20051109
  Transmission Date: 20060501
  Serious: Yes (Hospitalization)
  Sender: FDA-Public Use
  Company Number: 2005PK02127

PATIENT
  Age: 29040 Day
  Sex: Male
  Weight: 85 kg

DRUGS (7)
  1. CASODEX [Suspect]
     Indication: PROSTATE CANCER
     Route: 048
     Dates: start: 20051012, end: 20051015
  2. PANTOZOL [Concomitant]
     Route: 048
  3. METOPROLOL [Concomitant]
  4. LISINOPRIL [Concomitant]
  5. HYDROCHLOROTHIAZIDE [Concomitant]
  6. AVANDAMET [Concomitant]
  7. NITRENDIPIN [Concomitant]

REACTIONS (2)
  - GASTROENTERITIS [None]
  - SUBILEUS [None]
